FAERS Safety Report 23967797 (Version 4)
Quarter: 2025Q1

REPORT INFORMATION
  Report Type: Spontaneous
  Country: US (occurrence: US)
  Receive Date: 20240612
  Receipt Date: 20250108
  Transmission Date: 20250409
  Serious: No
  Sender: SANOFI AVENTIS
  Company Number: US-SA-SAC20240611001213

PATIENT
  Age: 61 Year
  Sex: Male
  Weight: 92.99 kg

DRUGS (2)
  1. REZUROCK [Suspect]
     Active Substance: BELUMOSUDIL
     Indication: Chronic graft versus host disease
     Dosage: 200 MG, QD
     Route: 048
     Dates: start: 20230512
  2. MONTELUKAST [Concomitant]
     Active Substance: MONTELUKAST

REACTIONS (18)
  - Rhinorrhoea [Unknown]
  - Muscular weakness [Unknown]
  - Hypoaesthesia [Unknown]
  - Arthropathy [Unknown]
  - Emotional disorder [Unknown]
  - Depression [Unknown]
  - Anxiety [Unknown]
  - Energy increased [Unknown]
  - General physical health deterioration [Unknown]
  - Arthritis [Unknown]
  - Pain [Unknown]
  - Head discomfort [Unknown]
  - Musculoskeletal stiffness [Unknown]
  - Abdominal distension [Unknown]
  - Arthralgia [Unknown]
  - Muscle spasms [Unknown]
  - Fatigue [Unknown]
  - Cough [Unknown]
